FAERS Safety Report 5217458-0 (Version None)
Quarter: 2007Q1

REPORT INFORMATION
  Report Type: 
  Country: None (occurrence: None)
  Receive Date: 20070124
  Receipt Date: 20060306
  Transmission Date: 20070707
  Serious: No
  Sender: FDA-Public Use
  Company Number: US-GLAXOSMITHKLINE-A0596828A

PATIENT
  Sex: Female

DRUGS (4)
  1. PAXIL CR [Suspect]
     Indication: DRUG USE FOR UNKNOWN INDICATION
     Route: 048
  2. PAXIL [Suspect]
     Indication: DRUG USE FOR UNKNOWN INDICATION
     Route: 048
     Dates: start: 20060303
  3. PAXIL [Suspect]
     Dosage: 10MG UNKNOWN
     Route: 048
  4. PAXIL [Suspect]
     Route: 048

REACTIONS (6)
  - ANXIETY [None]
  - CONSTIPATION [None]
  - DIZZINESS [None]
  - DYSKINESIA [None]
  - DYSSOMNIA [None]
  - NIGHTMARE [None]
